FAERS Safety Report 19447720 (Version 1)
Quarter: 2021Q2

REPORT INFORMATION
  Report Type: Spontaneous
  Country: US (occurrence: US)
  Receive Date: 20210622
  Receipt Date: 20210622
  Transmission Date: 20210717
  Serious: Yes (Other)
  Sender: FDA-Public Use
  Company Number: None

PATIENT
  Age: 74 Year
  Sex: Female
  Weight: 50.85 kg

DRUGS (4)
  1. BASAGLAR [Concomitant]
     Active Substance: INSULIN GLARGINE
  2. ROSUVASTATIN CALCIUM 5 MG DAILY [Suspect]
     Active Substance: ROSUVASTATIN CALCIUM
     Indication: BLOOD CHOLESTEROL
     Dosage: ?          QUANTITY:1 TABLET(S);?
     Route: 048
     Dates: start: 20210513, end: 20210613
  3. AMLODIPINE [Concomitant]
     Active Substance: AMLODIPINE BESYLATE
  4. OMEPRAZOLE. [Concomitant]
     Active Substance: OMEPRAZOLE

REACTIONS (3)
  - Muscle spasms [None]
  - Gait disturbance [None]
  - Muscle fatigue [None]

NARRATIVE: CASE EVENT DATE: 20210519
